FAERS Safety Report 8248029 (Version 5)
Quarter: 2012Q4

REPORT INFORMATION
  Report Type: Report from Study
  Country: DE (occurrence: DE)
  Receive Date: 20111117
  Receipt Date: 20121022
  Transmission Date: 20130627
  Serious: Yes (Disabling)
  Sender: FDA-Public Use
  Company Number: DE-ROCHE-1008350

PATIENT
  Age: 61 Year
  Sex: Male
  Weight: 84 kg

DRUGS (2)
  1. VEMURAFENIB [Suspect]
     Indication: MALIGNANT MELANOMA
     Route: 048
     Dates: start: 20111001, end: 20111028
  2. VEMURAFENIB [Suspect]
     Route: 048
     Dates: start: 20111107

REACTIONS (1)
  - Rash maculo-papular [Recovered/Resolved]
